FAERS Safety Report 7104402-4 (Version None)
Quarter: 2010Q4

REPORT INFORMATION
  Report Type: 
  Country: None (occurrence: None)
  Receive Date: 20101115
  Receipt Date: 20101012
  Transmission Date: 20110411
  Serious: Yes (Hospitalization)
  Sender: FDA-Public Use
  Company Number: CO-AMGEN-COLCT2010000847

PATIENT

DRUGS (4)
  1. ETANERCEPT [Suspect]
     Indication: RHEUMATOID ARTHRITIS
     Dosage: 50 MG, QWK
     Dates: start: 20060101
  2. MEDROL [Suspect]
     Indication: RHEUMATOID ARTHRITIS
     Route: 048
     Dates: start: 20040101, end: 20060717
  3. MEDROL [Suspect]
     Route: 048
  4. NAPROXEN [Concomitant]
     Indication: ARTHRITIS
     Dosage: 500 MG, UNK

REACTIONS (2)
  - COMA [None]
  - HAEMOGLOBIN DECREASED [None]
